FAERS Safety Report 7947919-2 (Version None)
Quarter: 2011Q4

REPORT INFORMATION
  Report Type: 
  Country: None (occurrence: None)
  Receive Date: 20111121
  Receipt Date: 20111111
  Transmission Date: 20120403
  Serious: Yes (Hospitalization, Other)
  Sender: FDA-Public Use
  Company Number: 2011SP035868

PATIENT
  Age: 53 Year
  Sex: Female
  Weight: 72.5755 kg

DRUGS (1)
  1. NUVARING [Suspect]
     Indication: MENORRHAGIA
     Dates: start: 20081201, end: 20090801

REACTIONS (7)
  - PNEUMONIA [None]
  - DEEP VEIN THROMBOSIS [None]
  - PULMONARY EMBOLISM [None]
  - MIGRAINE [None]
  - HEART RATE IRREGULAR [None]
  - CARDIOVASCULAR DISORDER [None]
  - VARICOSE VEIN [None]
